FAERS Safety Report 7555603-2 (Version None)
Quarter: 2011Q2

REPORT INFORMATION
  Report Type: 
  Country: None (occurrence: None)
  Receive Date: 20110617
  Receipt Date: 20010423
  Transmission Date: 20111010
  Serious: Yes (Death, Hospitalization)
  Sender: FDA-Public Use
  Company Number: PHEH2001US03655

PATIENT
  Sex: Male

DRUGS (8)
  1. XALATAN [Concomitant]
  2. CARDIZEM [Concomitant]
  3. RISPERDAL [Concomitant]
     Dosage: UNK, UNK
  4. PROSCAR [Concomitant]
  5. ACCUPRIL [Concomitant]
  6. DEPROL [Concomitant]
  7. EXELON [Suspect]
     Indication: DEMENTIA ALZHEIMER'S TYPE
     Dosage: 6 MG, BID
     Route: 048
     Dates: start: 20000922, end: 20010417
  8. CELEBREX [Concomitant]

REACTIONS (3)
  - CHEST PAIN [None]
  - COMA [None]
  - CEREBROVASCULAR ACCIDENT [None]
